FAERS Safety Report 22822884 (Version 5)
Quarter: 2023Q4

REPORT INFORMATION
  Report Type: Spontaneous
  Country: US (occurrence: US)
  Receive Date: 20230815
  Receipt Date: 20231121
  Transmission Date: 20240109
  Serious: No
  Sender: FDA-Public Use
  Company Number: US-002147023-NVSC2023US177128

PATIENT
  Sex: Female

DRUGS (2)
  1. VOTRIENT [Suspect]
     Active Substance: PAZOPANIB HYDROCHLORIDE
     Indication: Neoplasm malignant
     Dosage: 400 MG, QD
     Route: 048
     Dates: start: 202308
  2. VOTRIENT [Suspect]
     Active Substance: PAZOPANIB HYDROCHLORIDE
     Dosage: 800 MG, QD
     Route: 048
     Dates: start: 202308

REACTIONS (5)
  - Oral pain [Unknown]
  - Fatigue [Unknown]
  - Diarrhoea [Unknown]
  - Alopecia [Unknown]
  - Drug intolerance [Unknown]
